FAERS Safety Report 24139079 (Version 1)
Quarter: 2024Q3

REPORT INFORMATION
  Report Type: Spontaneous
  Country: SA (occurrence: SA)
  Receive Date: 20240726
  Receipt Date: 20240726
  Transmission Date: 20241017
  Serious: Yes (Other)
  Sender: BRISTOL MYERS SQUIBB
  Company Number: SA-BRISTOL-MYERS SQUIBB COMPANY-2024-113638

PATIENT
  Age: 41 Year
  Sex: Male

DRUGS (2)
  1. DASATINIB [Suspect]
     Active Substance: DASATINIB
     Indication: Chronic myeloid leukaemia
     Dates: end: 202202
  2. NILOTINIB [Suspect]
     Active Substance: NILOTINIB
     Indication: Chronic myeloid leukaemia

REACTIONS (2)
  - Osteonecrosis of jaw [Unknown]
  - Keratosis pilaris [Recovered/Resolved]

NARRATIVE: CASE EVENT DATE: 20211201
